FAERS Safety Report 25730790 (Version 1)
Quarter: 2025Q3

REPORT INFORMATION
  Report Type: Spontaneous
  Country: US (occurrence: None)
  Receive Date: 20250827
  Receipt Date: 20250827
  Transmission Date: 20251021
  Serious: Yes (Death)
  Sender: FDA-CTU
  Company Number: None

PATIENT
  Age: 79 Year
  Sex: Male
  Weight: 63 kg

DRUGS (1)
  1. APIXABAN [Suspect]
     Active Substance: APIXABAN
     Indication: Subdural haematoma
     Dosage: FREQUENCY : TWICE A DAY;?
     Route: 048
     Dates: start: 20230210, end: 20250707

REACTIONS (2)
  - Subdural haematoma [None]
  - Head injury [None]

NARRATIVE: CASE EVENT DATE: 20250707
